FAERS Safety Report 4937105-2 (Version None)
Quarter: 2006Q1

REPORT INFORMATION
  Report Type: 
  Country: None (occurrence: None)
  Receive Date: 20060307
  Receipt Date: 20060307
  Transmission Date: 20060701
  Serious: Yes (Hospitalization)
  Sender: FDA-Public Use
  Company Number: None

PATIENT
  Age: 25 Year
  Sex: Female
  Weight: 87.0906 kg

DRUGS (6)
  1. PENICILLIN [Suspect]
     Indication: PROPHYLAXIS
     Dates: start: 20051222, end: 20060103
  2. VIT B12 [Concomitant]
  3. FLEXERIL [Concomitant]
  4. PREDNISONE [Concomitant]
  5. ATARAX [Concomitant]
  6. NAPROSYN [Concomitant]

REACTIONS (7)
  - CHILLS [None]
  - CHOKING SENSATION [None]
  - DENTAL TREATMENT [None]
  - JOINT STIFFNESS [None]
  - JOINT SWELLING [None]
  - POST PROCEDURAL COMPLICATION [None]
  - SERUM SICKNESS [None]
